FAERS Safety Report 25685453 (Version 1)
Quarter: 2025Q3

REPORT INFORMATION
  Report Type: Spontaneous
  Country: CN (occurrence: CN)
  Receive Date: 20250815
  Receipt Date: 20250815
  Transmission Date: 20251021
  Serious: Yes (Other)
  Sender: PFIZER
  Company Number: CN-PFIZER INC-PV202500097734

PATIENT
  Age: 47 Year
  Sex: Female
  Weight: 75 kg

DRUGS (5)
  1. CYTARABINE [Suspect]
     Active Substance: CYTARABINE
     Indication: Acute monocytic leukaemia
     Dosage: 0.2 G, 1X/DAY
     Route: 041
     Dates: start: 20250723, end: 20250729
  2. DAUNORUBICIN HYDROCHLORIDE [Suspect]
     Active Substance: DAUNORUBICIN HYDROCHLORIDE
     Indication: Acute monocytic leukaemia
     Dosage: 60 MG, 1X/DAY
     Route: 041
     Dates: start: 20250723, end: 20250725
  3. VENETOCLAX [Concomitant]
     Active Substance: VENETOCLAX
     Indication: Acute monocytic leukaemia
     Dates: start: 20250726, end: 20250726
  4. VENETOCLAX [Concomitant]
     Active Substance: VENETOCLAX
     Dates: start: 20250727, end: 20250727
  5. VENETOCLAX [Concomitant]
     Active Substance: VENETOCLAX
     Dates: start: 20250728, end: 20250730

REACTIONS (4)
  - Gastrointestinal disorder [Recovering/Resolving]
  - Nausea [Recovering/Resolving]
  - Abdominal distension [Recovering/Resolving]
  - Gastrooesophageal reflux disease [Recovering/Resolving]

NARRATIVE: CASE EVENT DATE: 20250726
